FAERS Safety Report 20719962 (Version 1)
Quarter: 2022Q2

REPORT INFORMATION
  Report Type: Spontaneous
  Country: CA (occurrence: CA)
  Receive Date: 20220418
  Receipt Date: 20220418
  Transmission Date: 20220720
  Serious: Yes (Death, Hospitalization, Other)
  Sender: FDA-Public Use
  Company Number: CA-PFIZER INC-202200531501

PATIENT
  Age: 71 Year
  Sex: Female

DRUGS (9)
  1. POTASSIUM CHLORIDE [Suspect]
     Active Substance: POTASSIUM CHLORIDE
     Indication: Blood potassium decreased
     Dosage: UNK
     Route: 065
  2. ASPIRIN [Suspect]
     Active Substance: ASPIRIN
     Dosage: UNK
     Route: 065
  3. AMBRISENTAN [Suspect]
     Active Substance: AMBRISENTAN
     Indication: Pulmonary arterial hypertension
     Dosage: 10 MG, 1X/DAY
     Route: 065
  4. AMBRISENTAN [Suspect]
     Active Substance: AMBRISENTAN
     Dosage: UNK
     Route: 065
  5. IRON [Suspect]
     Active Substance: IRON
     Dosage: UNK
     Route: 065
  6. METOLAZONE [Suspect]
     Active Substance: METOLAZONE
     Dosage: 3 DF, WEEKLY
     Route: 065
  7. UPTRAVI [Suspect]
     Active Substance: SELEXIPAG
     Dosage: 800 UG, 2X/DAY
     Route: 048
  8. UPTRAVI [Suspect]
     Active Substance: SELEXIPAG
     Dosage: 600 UG, 2X/DAY
     Route: 048
  9. UPTRAVI [Suspect]
     Active Substance: SELEXIPAG
     Dosage: 200 UG, 2X/DAY
     Route: 048

REACTIONS (16)
  - Death [Fatal]
  - Asthenia [Fatal]
  - Diarrhoea [Fatal]
  - Dyspnoea exertional [Fatal]
  - Feeding disorder [Fatal]
  - Headache [Fatal]
  - Hypotension [Fatal]
  - Illness [Fatal]
  - Loss of personal independence in daily activities [Fatal]
  - Malaise [Fatal]
  - Nausea [Fatal]
  - Pain [Fatal]
  - Pulmonary arterial hypertension [Fatal]
  - Rectal tenesmus [Fatal]
  - Tremor [Fatal]
  - Unevaluable event [Fatal]
